FAERS Safety Report 9372690 (Version 2)
Quarter: 2014Q2

REPORT INFORMATION
  Report Type: Report from Study
  Country: US (occurrence: US)
  Receive Date: 20130627
  Receipt Date: 20140626
  Transmission Date: 20141212
  Serious: Yes (Other)
  Sender: FDA-Public Use
  Company Number: US-MYLANLABS-2013S1005867

PATIENT
  Age: 33 Year
  Sex: Female

DRUGS (9)
  1. CLOZAPINE TABLETS [Suspect]
     Indication: SUICIDAL IDEATION
     Route: 048
     Dates: start: 201301, end: 20130417
  2. CLOZAPINE TABLETS [Suspect]
     Indication: PSYCHOTIC DISORDER
     Route: 048
     Dates: start: 201301, end: 20130417
  3. CLOZAPINE TABLETS [Suspect]
     Indication: SUICIDAL IDEATION
     Route: 048
  4. CLOZAPINE TABLETS [Suspect]
     Indication: PSYCHOTIC DISORDER
     Route: 048
  5. PRISTIQ [Concomitant]
  6. ABILIFY [Concomitant]
  7. TRILEPTAL [Concomitant]
  8. TRAZODONE [Concomitant]
  9. COUMADIN [Concomitant]

REACTIONS (2)
  - Granulocytopenia [Not Recovered/Not Resolved]
  - Leukopenia [Recovered/Resolved]
